FAERS Safety Report 22640913 (Version 1)
Quarter: 2023Q2

REPORT INFORMATION
  Report Type: Spontaneous
  Country: US (occurrence: US)
  Receive Date: 20230626
  Receipt Date: 20230626
  Transmission Date: 20230722
  Serious: Yes (Hospitalization, Other)
  Sender: FDA-Public Use
  Company Number: US-BAXTER-2023BAX024738

PATIENT
  Sex: Male
  Weight: 91 kg

DRUGS (2)
  1. EXTRANEAL [Suspect]
     Active Substance: CALCIUM CHLORIDE\ICODEXTRIN\MAGNESIUM CHLORIDE\SODIUM CHLORIDE\SODIUM LACTATE
     Dosage: FINAL FILL
     Route: 033
  2. DELFLEX NEUTRAL PH [Suspect]
     Active Substance: CALCIUM CHLORIDE\DEXTROSE\MAGNESIUM CHLORIDE\SODIUM CHLORIDE\SODIUM LACTATE
     Dosage: WITH 5 FILLS FV 2000 ML, LFV 2000 ML, TTV 12000 ML, DWT 01 HR 30 MIN
     Route: 033

REACTIONS (2)
  - Pneumonia [Unknown]
  - Mental status changes [Unknown]
